FAERS Safety Report 14066303 (Version 10)
Quarter: 2018Q4

REPORT INFORMATION
  Report Type: Spontaneous
  Country: US (occurrence: US)
  Receive Date: 20171010
  Receipt Date: 20181218
  Transmission Date: 20190204
  Serious: Yes (Death, Other)
  Sender: FDA-Public Use
  Company Number: PHEH2017US032439

PATIENT
  Sex: Female

DRUGS (1)
  1. ZOFRAN [Suspect]
     Active Substance: ONDANSETRON HYDROCHLORIDE
     Indication: FOETAL EXPOSURE DURING PREGNANCY
     Route: 064

REACTIONS (22)
  - Dilatation ventricular [Fatal]
  - Thrombocytopenia neonatal [Unknown]
  - Hypokalaemia [Unknown]
  - Injury [Unknown]
  - Premature baby [Unknown]
  - Hypocalcaemia [Unknown]
  - Death [Fatal]
  - Intraventricular haemorrhage neonatal [Fatal]
  - Pulmonary hypertension [Unknown]
  - Tricuspid valve incompetence [Unknown]
  - Neonatal respiratory distress syndrome [Fatal]
  - Foetal exposure during pregnancy [Unknown]
  - Sepsis neonatal [Unknown]
  - Pulmonary haemorrhage [Unknown]
  - Low birth weight baby [Unknown]
  - Cataract [Unknown]
  - Hyperglycaemia [Unknown]
  - Bradycardia neonatal [Unknown]
  - Neonatal hypotension [Unknown]
  - Hypoglycaemia neonatal [Unknown]
  - Neutropenia neonatal [Unknown]
  - Anaemia neonatal [Unknown]
